FAERS Safety Report 25283245 (Version 1)
Quarter: 2025Q2

REPORT INFORMATION
  Report Type: Report from Study
  Country: KR (occurrence: KR)
  Receive Date: 20250508
  Receipt Date: 20250508
  Transmission Date: 20250717
  Serious: Yes (Hospitalization)
  Sender: SUNOVION
  Company Number: KR-BIAL-BIAL-18804

PATIENT

DRUGS (5)
  1. ESLICARBAZEPINE ACETATE [Suspect]
     Active Substance: ESLICARBAZEPINE ACETATE
     Indication: Epilepsy
     Dosage: 400 MILLIGRAM, QD
     Route: 048
     Dates: start: 20241107, end: 20241113
  2. ESLICARBAZEPINE ACETATE [Suspect]
     Active Substance: ESLICARBAZEPINE ACETATE
     Dosage: 800 MILLIGRAM, QD
     Route: 048
     Dates: start: 20241114, end: 20241204
  3. ESLICARBAZEPINE ACETATE [Suspect]
     Active Substance: ESLICARBAZEPINE ACETATE
     Dosage: 400 MILLIGRAM, QD
     Route: 048
     Dates: start: 20241205
  4. EPILATAM [Concomitant]
     Indication: Epilepsy
     Route: 048
     Dates: start: 20190305
  5. COUGH SYRUP [Concomitant]
     Active Substance: DEXTROMETHORPHAN HYDROBROMIDE\GUAIFENESIN
     Indication: Cough
     Route: 048
     Dates: start: 20200707

REACTIONS (2)
  - Pyelonephritis acute [Recovered/Resolved]
  - Underdose [Not Recovered/Not Resolved]

NARRATIVE: CASE EVENT DATE: 20241205
